APPROVED DRUG PRODUCT: CABAZITAXEL
Active Ingredient: CABAZITAXEL
Strength: 60MG/1.5ML (40MG/ML)
Dosage Form/Route: SOLUTION;INTRAVENOUS
Application: A207718 | Product #001 | TE Code: AP
Applicant: DR REDDYS LABORATORIES LTD
Approved: Feb 10, 2023 | RLD: No | RS: No | Type: RX